FAERS Safety Report 16053148 (Version 2)
Quarter: 2019Q2

REPORT INFORMATION
  Report Type: Report from Study
  Country: CA (occurrence: CA)
  Receive Date: 20190308
  Receipt Date: 20190410
  Transmission Date: 20190711
  Serious: Yes (Other)
  Sender: FDA-Public Use
  Company Number: CA-SA-2017SA173232

PATIENT
  Age: 37 Year
  Sex: Female

DRUGS (14)
  1. BENADRYL [Concomitant]
     Active Substance: DIPHENHYDRAMINE HYDROCHLORIDE
     Indication: PREMEDICATION
     Dosage: 50 MG,PRN
     Dates: start: 20170911, end: 20170915
  2. FLAGYL [Concomitant]
     Active Substance: METRONIDAZOLE\METRONIDAZOLE HYDROCHLORIDE
     Dosage: 500 MG, BID
     Route: 048
  3. ALEMTUZUMAB [Suspect]
     Active Substance: ALEMTUZUMAB
     Indication: RELAPSING-REMITTING MULTIPLE SCLEROSIS
     Dosage: 12 MG,QD
     Route: 041
     Dates: start: 20170911, end: 20170913
  4. ACICLOVIR [Concomitant]
     Active Substance: ACYCLOVIR
     Indication: PREMEDICATION
     Dosage: 200 MG,BID
     Route: 048
     Dates: start: 20170911
  5. PROZAC [Concomitant]
     Active Substance: FLUOXETINE HYDROCHLORIDE
     Dosage: UNK UNK,QD
     Route: 048
  6. NORTRIPTYLINE [Concomitant]
     Active Substance: NORTRIPTYLINE
  7. RANITIDINE. [Concomitant]
     Active Substance: RANITIDINE
     Indication: PREMEDICATION
     Dosage: 150 MG,UNK
     Route: 048
     Dates: start: 20170911, end: 20170915
  8. PARACETAMOL [Concomitant]
     Active Substance: ACETAMINOPHEN
     Indication: PREMEDICATION
     Dosage: UNK UNK,PRN
     Route: 048
     Dates: start: 20170911
  9. ALEMTUZUMAB [Suspect]
     Active Substance: ALEMTUZUMAB
     Dosage: 12 MG,QD
     Route: 041
     Dates: start: 20170914, end: 20170915
  10. METHYLPREDNISOLONE. [Suspect]
     Active Substance: METHYLPREDNISOLONE
     Indication: PREMEDICATION
     Dosage: 1 G,UNK
     Route: 042
     Dates: start: 20170911, end: 20170913
  11. GRAVOL [Concomitant]
     Active Substance: DIMENHYDRINATE
     Indication: PREMEDICATION
     Dosage: 50 MG,PRN
     Route: 048
     Dates: start: 20170911, end: 20170915
  12. ABILIFY [Concomitant]
     Active Substance: ARIPIPRAZOLE
     Dosage: UNK UNK,QD
     Route: 048
  13. METHYLPREDNISOLONE. [Concomitant]
     Active Substance: METHYLPREDNISOLONE
     Indication: PREMEDICATION
     Dosage: 1 G,UNK
     Route: 042
     Dates: start: 20170911, end: 20170913
  14. TYLENOL [Concomitant]
     Active Substance: ACETAMINOPHEN

REACTIONS (58)
  - Multiple sclerosis relapse [Not Recovered/Not Resolved]
  - Cerebrovascular accident [Not Recovered/Not Resolved]
  - Hypertension [Recovered/Resolved]
  - Sinusitis [Recovered/Resolved]
  - Blood creatinine increased [Not Recovered/Not Resolved]
  - Fatigue [Not Recovered/Not Resolved]
  - Vomiting [Recovering/Resolving]
  - Vaginal odour [Recovering/Resolving]
  - Arthropod bite [Recovering/Resolving]
  - Arthralgia [Not Recovered/Not Resolved]
  - Nausea [Not Recovered/Not Resolved]
  - Cervix carcinoma [Not Recovered/Not Resolved]
  - Gait disturbance [Not Recovered/Not Resolved]
  - Body temperature increased [Recovered/Resolved]
  - Crying [Recovered/Resolved]
  - Vaginal discharge [Recovering/Resolving]
  - Nasopharyngitis [Recovering/Resolving]
  - Stress [Not Recovered/Not Resolved]
  - Weight decreased [Not Recovered/Not Resolved]
  - Decreased appetite [Not Recovered/Not Resolved]
  - Asthenia [Recovering/Resolving]
  - Cognitive disorder [Not Recovered/Not Resolved]
  - Bacterial vaginosis [Not Recovered/Not Resolved]
  - Urinary retention [Not Recovered/Not Resolved]
  - Dysarthria [Not Recovered/Not Resolved]
  - Paraesthesia [Not Recovered/Not Resolved]
  - Rash [Recovering/Resolving]
  - Asthenia [Recovered/Resolved]
  - Flushing [Recovered/Resolved]
  - Headache [Recovering/Resolving]
  - Rash pruritic [Recovering/Resolving]
  - Intra-uterine contraceptive device insertion [Unknown]
  - Vaginal haemorrhage [Not Recovered/Not Resolved]
  - Myalgia [Not Recovered/Not Resolved]
  - Bone pain [Not Recovered/Not Resolved]
  - Asthenia [Not Recovered/Not Resolved]
  - Smear cervix abnormal [Not Recovered/Not Resolved]
  - Facial paralysis [Not Recovered/Not Resolved]
  - Pyrexia [Recovered/Resolved]
  - Chills [Recovering/Resolving]
  - Heart rate increased [Recovered/Resolved]
  - Contusion [Not Recovered/Not Resolved]
  - Lactose intolerance [Recovered/Resolved]
  - Unevaluable event [Not Recovered/Not Resolved]
  - Haematemesis [Unknown]
  - Suicide attempt [Recovering/Resolving]
  - Feeling hot [Recovered/Resolved]
  - CD4 lymphocytes decreased [Not Recovered/Not Resolved]
  - Hypersomnia [Not Recovered/Not Resolved]
  - Alopecia [Not Recovered/Not Resolved]
  - Bradycardia [Recovered/Resolved]
  - Renal failure [Not Recovered/Not Resolved]
  - Uterine rupture [Not Recovered/Not Resolved]
  - Menstrual disorder [Not Recovered/Not Resolved]
  - Retching [Recovering/Resolving]
  - Panic attack [Recovered/Resolved]
  - Euphoric mood [Recovered/Resolved]
  - Dysgeusia [Recovered/Resolved]

NARRATIVE: CASE EVENT DATE: 20170911
